FAERS Safety Report 7707118-6 (Version None)
Quarter: 2011Q3

REPORT INFORMATION
  Report Type: 
  Country: None (occurrence: None)
  Receive Date: 20110824
  Receipt Date: 20110816
  Transmission Date: 20111222
  Serious: Yes (Death, Hospitalization)
  Sender: FDA-Public Use
  Company Number: DE-NOVOPROD-324972

PATIENT

DRUGS (5)
  1. INSULIN DETEMIR 2.4 MOL/L [Suspect]
     Indication: TYPE 2 DIABETES MELLITUS
     Dosage: 8 U, QD
     Route: 058
     Dates: start: 20100608
  2. MOLSIDOMIN [Concomitant]
     Dosage: UNK
     Route: 048
     Dates: start: 20080121
  3. ALLOPURINOL [Concomitant]
     Dosage: UNK
     Route: 048
     Dates: start: 20100615
  4. ENALAPRIL MALEATE [Concomitant]
     Dosage: UNK
     Route: 048
     Dates: start: 20060315
  5. MARCUMAR [Concomitant]
     Dosage: UNK
     Route: 048
     Dates: start: 20100302

REACTIONS (2)
  - FALL [None]
  - BRAIN INJURY [None]
